FAERS Safety Report 15109419 (Version 1)
Quarter: 2018Q3

REPORT INFORMATION
  Report Type: Report from Study
  Country: FR (occurrence: FR)
  Receive Date: 20180705
  Receipt Date: 20180705
  Transmission Date: 20181010
  Serious: Yes (Death, Life-Threatening, Hospitalization, Other)
  Sender: FDA-Public Use
  Company Number: FR-ELI_LILLY_AND_COMPANY-FR201806012800

PATIENT
  Age: 56 Year
  Sex: Male

DRUGS (7)
  1. SKENAN [Concomitant]
     Active Substance: MORPHINE SULFATE
     Indication: PAIN
     Dosage: UNK
     Route: 048
  2. KARDEGIC [Concomitant]
     Active Substance: ASPIRIN DL-LYSINE
     Indication: CORONARY ARTERY DISEASE
     Dosage: UNK
     Route: 048
  3. ELOXATIN [Suspect]
     Active Substance: OXALIPLATIN
     Indication: PRODUCT USED FOR UNKNOWN INDICATION
     Dosage: UNK
     Route: 065
     Dates: start: 20151109, end: 20160225
  4. AFINITOR [Suspect]
     Active Substance: EVEROLIMUS
     Indication: PANCREATIC NEUROENDOCRINE TUMOUR METASTATIC
     Dosage: 10 MG, DAILY
     Route: 065
     Dates: start: 20160326, end: 20160604
  5. GEMCITABINE HYDROCHLORIDE. [Suspect]
     Active Substance: GEMCITABINE HYDROCHLORIDE
     Indication: PRODUCT USED FOR UNKNOWN INDICATION
     Dosage: UNK
     Route: 065
     Dates: start: 20151109, end: 20160225
  6. SUTENT [Suspect]
     Active Substance: SUNITINIB MALATE
     Dosage: 25 MG, DAILY
     Route: 065
     Dates: start: 20160627
  7. SUTENT [Suspect]
     Active Substance: SUNITINIB MALATE
     Indication: PRODUCT USED FOR UNKNOWN INDICATION
     Dosage: 37.5 MG, DAILY
     Route: 065
     Dates: start: 20160613, end: 20160626

REACTIONS (13)
  - Rectal haemorrhage [Unknown]
  - Loss of consciousness [Unknown]
  - Haematemesis [Unknown]
  - Gastrointestinal haemorrhage [Fatal]
  - Pancreatic neuroendocrine tumour metastatic [Fatal]
  - Tachycardia [Unknown]
  - Dyspnoea [Unknown]
  - Malignant neoplasm progression [Fatal]
  - Thrombosis [Unknown]
  - Hypotension [Unknown]
  - Malaise [Unknown]
  - Haematochezia [Unknown]
  - Duodenal ulcer [Unknown]

NARRATIVE: CASE EVENT DATE: 20160803
